FAERS Safety Report 10919901 (Version 1)
Quarter: 2015Q1

REPORT INFORMATION
  Report Type: Spontaneous
  Country: GB (occurrence: GB)
  Receive Date: 20150317
  Receipt Date: 20150317
  Transmission Date: 20150721
  Serious: Yes (Other)
  Sender: FDA-Public Use
  Company Number: GB-ROCHE-1450988

PATIENT
  Sex: Female

DRUGS (3)
  1. HERCEPTIN [Suspect]
     Active Substance: TRASTUZUMAB
     Indication: NEOPLASM MALIGNANT
     Route: 058
  2. XGEVA [Concomitant]
     Active Substance: DENOSUMAB
     Route: 058
  3. HERCEPTIN [Suspect]
     Active Substance: TRASTUZUMAB
     Indication: NEOPLASM MALIGNANT
     Route: 042

REACTIONS (14)
  - Sensory loss [Unknown]
  - Pain [Unknown]
  - Back pain [Unknown]
  - Asthenia [Unknown]
  - Diarrhoea [Unknown]
  - Oral candidiasis [Unknown]
  - Fatigue [Unknown]
  - Erythema [Unknown]
  - Metastases to central nervous system [Unknown]
  - Metastases to bone [Unknown]
  - Hypoaesthesia [Unknown]
  - Lower respiratory tract infection [Unknown]
  - Neuropathy peripheral [Unknown]
  - Alopecia [Unknown]
